FAERS Safety Report 11867803 (Version 5)
Quarter: 2017Q2

REPORT INFORMATION
  Report Type: Report from Study
  Country: US (occurrence: US)
  Receive Date: 20151224
  Receipt Date: 20170421
  Transmission Date: 20170829
  Serious: Yes (Life-Threatening, Hospitalization)
  Sender: FDA-Public Use
  Company Number: PHHO2015US021199

PATIENT
  Age: 57 Year
  Sex: Female
  Weight: 55.7 kg

DRUGS (18)
  1. COMPARATOR LETROZOLE [Suspect]
     Active Substance: LETROZOLE
     Indication: BREAST CANCER
     Dosage: UNK
     Route: 048
     Dates: start: 20151103
  2. GLUCOSE [Concomitant]
     Active Substance: DEXTROSE
     Indication: HYPOGLYCAEMIA
  3. ACETADOTE [Concomitant]
     Active Substance: ACETYLCYSTEINE
     Dosage: 500 ML, UNK
     Route: 041
     Dates: start: 20151218, end: 20151219
  4. ACETADOTE [Concomitant]
     Active Substance: ACETYLCYSTEINE
     Dosage: 1000 ML, UNK
     Route: 041
     Dates: start: 20151218, end: 20151219
  5. DELTASONE [Concomitant]
     Active Substance: PREDNISONE
     Indication: HEPATOTOXICITY
     Dosage: 60 MG, UNK
     Route: 065
     Dates: start: 20151218, end: 20151221
  6. DEXTROSE. [Concomitant]
     Active Substance: DEXTROSE
     Indication: HYPOGLYCAEMIA
  7. GLUCOSE [Concomitant]
     Active Substance: DEXTROSE
     Indication: VITAMIN D DEFICIENCY
     Dosage: 20 G, UNK
     Route: 065
     Dates: start: 20151218, end: 20151221
  8. ATIVAN [Concomitant]
     Active Substance: LORAZEPAM
     Indication: ANXIETY
     Dosage: UNK
     Route: 065
     Dates: start: 20151027
  9. MEPHYTON [Concomitant]
     Active Substance: PHYTONADIONE
     Indication: HEPATOTOXICITY
     Dosage: 10 MG, UNK
     Route: 065
     Dates: start: 20151218, end: 20151220
  10. SODIUM CHLORIDE. [Concomitant]
     Active Substance: SODIUM CHLORIDE
     Indication: HEPATOTOXICITY
     Dosage: 3 ML, UNK
     Route: 065
     Dates: start: 20151218, end: 20151218
  11. BKM120 [Suspect]
     Active Substance: BUPARLISIB HYDROCHLORIDE
     Indication: BREAST CANCER
     Dosage: 100 MG, UNK
     Route: 048
     Dates: start: 20151103, end: 20151214
  12. VITAMIN D3 [Concomitant]
     Active Substance: CHOLECALCIFEROL
     Indication: VITAMIN D DEFICIENCY
     Dosage: 2000 IU, UNK
     Route: 065
     Dates: start: 20151103, end: 20151219
  13. VITAMIN D3 [Concomitant]
     Active Substance: CHOLECALCIFEROL
     Indication: HEPATOTOXICITY
     Dosage: 2000 IU, UNK
     Route: 065
     Dates: start: 20151219
  14. DELTASONE [Concomitant]
     Active Substance: PREDNISONE
     Dosage: 10 MG, UNK
     Route: 065
     Dates: start: 20151221
  15. DEXTROSE. [Concomitant]
     Active Substance: DEXTROSE
     Indication: VITAMIN D DEFICIENCY
     Dosage: 12.5 G, UNK
     Route: 065
     Dates: start: 20151218, end: 20151221
  16. NOVOLOG [Concomitant]
     Active Substance: INSULIN ASPART
     Indication: HEPATOTOXICITY
     Dosage: 1000 U/ML, UNK
     Route: 065
     Dates: start: 20151219, end: 20151221
  17. ACETADOTE [Concomitant]
     Active Substance: ACETYLCYSTEINE
     Indication: HEPATOTOXICITY
     Dosage: 200 ML, UNK
     Route: 041
     Dates: start: 20151218, end: 20151219
  18. ACETADOTE [Concomitant]
     Active Substance: ACETYLCYSTEINE
     Dosage: 500 ML, UNK
     Route: 041
     Dates: start: 20151218, end: 20151220

REACTIONS (1)
  - Hepatotoxicity [Recovering/Resolving]

NARRATIVE: CASE EVENT DATE: 20151215
